FAERS Safety Report 5819595-6 (Version None)
Quarter: 2008Q3

REPORT INFORMATION
  Report Type: 
  Country: None (occurrence: None)
  Receive Date: 20080717
  Receipt Date: 20080707
  Transmission Date: 20090109
  Serious: Yes (Death)
  Sender: FDA-Public Use
  Company Number: 002057

PATIENT
  Age: 36 Year
  Sex: Female

DRUGS (8)
  1. BUSULFEX [Suspect]
     Indication: STEM CELL TRANSPLANT
     Dosage: 165 ML, DAILY DOSE; 220 ML, DAILY DOSE; INTRAVENOUS; 55 ML, DAILY DOSE; INTRAVENOUS
     Route: 042
     Dates: start: 20070910, end: 20070910
  2. BUSULFEX [Suspect]
     Indication: STEM CELL TRANSPLANT
     Dosage: 165 ML, DAILY DOSE; 220 ML, DAILY DOSE; INTRAVENOUS; 55 ML, DAILY DOSE; INTRAVENOUS
     Route: 042
     Dates: start: 20070911, end: 20070911
  3. BUSULFEX [Suspect]
     Indication: STEM CELL TRANSPLANT
     Dosage: 165 ML, DAILY DOSE; 220 ML, DAILY DOSE; INTRAVENOUS; 55 ML, DAILY DOSE; INTRAVENOUS
     Route: 042
     Dates: start: 20070912, end: 20070912
  4. FLUDARABINE PHOSPHATE [Concomitant]
  5. VALPROATE SODIUM [Concomitant]
  6. MELPHALAN (MELPHALAN) [Concomitant]
  7. FILGRASTIM (FILGRASTIM) [Concomitant]
  8. TACROLIMUS [Concomitant]

REACTIONS (8)
  - ANOREXIA [None]
  - BACTERIAL SEPSIS [None]
  - DIARRHOEA [None]
  - ENTEROBACTER SEPSIS [None]
  - MALAISE [None]
  - NAUSEA [None]
  - PNEUMONIA VIRAL [None]
  - STOMATITIS [None]
